FAERS Safety Report 12902527 (Version 2)
Quarter: 2016Q4

REPORT INFORMATION
  Report Type: Report from Study
  Country: BR (occurrence: BR)
  Receive Date: 20161102
  Receipt Date: 20161128
  Transmission Date: 20170207
  Serious: Yes (Hospitalization, Other)
  Sender: FDA-Public Use
  Company Number: PHHY2016BR091412

PATIENT
  Sex: Female
  Weight: 53 kg

DRUGS (4)
  1. AROMASIN [Concomitant]
     Active Substance: EXEMESTANE
     Indication: BREAST CANCER
     Dosage: 25 MG, UNK
     Route: 065
  2. AFINITOR [Suspect]
     Active Substance: EVEROLIMUS
     Dosage: 10 MG, Q48H
     Route: 048
  3. AFINITOR [Suspect]
     Active Substance: EVEROLIMUS
     Dosage: 5 MG, QD
     Route: 048
  4. AFINITOR [Suspect]
     Active Substance: EVEROLIMUS
     Indication: BREAST CANCER METASTATIC
     Dosage: 5 MG, QD
     Route: 048
     Dates: start: 20160606

REACTIONS (27)
  - Decreased immune responsiveness [Unknown]
  - Epistaxis [Recovering/Resolving]
  - Inappropriate schedule of drug administration [Unknown]
  - Pyrexia [Unknown]
  - Metastases to liver [Unknown]
  - Aphthous ulcer [Unknown]
  - Lip dry [Unknown]
  - Kidney infection [Unknown]
  - Hypotension [Unknown]
  - Weight increased [Unknown]
  - Mucosal inflammation [Unknown]
  - Ageusia [Recovering/Resolving]
  - Urinary tract pain [Recovering/Resolving]
  - Dysuria [Unknown]
  - Feeding disorder [Unknown]
  - Weight decreased [Unknown]
  - Sepsis [Unknown]
  - Mouth injury [Recovered/Resolved]
  - Lip injury [Unknown]
  - Asthenia [Recovering/Resolving]
  - Urinary tract infection [Unknown]
  - Platelet count decreased [Unknown]
  - Malaise [Unknown]
  - Burn oral cavity [Unknown]
  - Drug intolerance [Unknown]
  - Dry mouth [Unknown]
  - Oral discomfort [Unknown]
